FAERS Safety Report 9019728 (Version 1)
Quarter: 2013Q1

REPORT INFORMATION
  Report Type: Spontaneous
  Country: US (occurrence: US)
  Receive Date: 20130118
  Receipt Date: 20130118
  Transmission Date: 20140127
  Serious: Yes (Other)
  Sender: FDA-Public Use
  Company Number: US-PFIZER INC-2013020903

PATIENT
  Age: 52 Year
  Sex: Female
  Weight: 88 kg

DRUGS (4)
  1. ADVIL ALLERGY SINUS [Suspect]
     Indication: HYPERSENSITIVITY
     Dosage: UNK
     Dates: end: 201212
  2. ADVIL ALLERGY SINUS [Suspect]
     Indication: INFLUENZA
  3. ADVIL ALLERGY SINUS [Suspect]
     Indication: NASOPHARYNGITIS
  4. ADVIL ALLERGY SINUS [Suspect]
     Indication: RHINORRHOEA

REACTIONS (1)
  - Hypertension [Not Recovered/Not Resolved]
